FAERS Safety Report 9054282 (Version 1)
Quarter: 2013Q1

REPORT INFORMATION
  Report Type: Spontaneous
  Country: DK (occurrence: DK)
  Receive Date: 20130208
  Receipt Date: 20130208
  Transmission Date: 20140127
  Serious: Yes (Other)
  Sender: FDA-Public Use
  Company Number: DK-GLAXOSMITHKLINE-B0866093A

PATIENT
  Age: 57 None
  Sex: Female

DRUGS (8)
  1. LAPATINIB [Suspect]
     Indication: BREAST CANCER
     Route: 065
  2. TAXOTERE [Suspect]
     Indication: BREAST CANCER
     Route: 065
     Dates: start: 200804
  3. HERCEPTIN [Suspect]
     Indication: BREAST CANCER
     Dosage: 520MG EVERY 3 WEEKS
     Route: 042
     Dates: start: 200804
  4. HERCEPTIN [Suspect]
     Indication: PRODUCT USED FOR UNKNOWN INDICATION
     Route: 042
     Dates: start: 20100913, end: 20100913
  5. XELODA [Suspect]
     Indication: BREAST CANCER
     Route: 048
     Dates: start: 20100913, end: 20100927
  6. PACLITAXEL [Suspect]
     Indication: BREAST CANCER
     Route: 065
  7. ERIBULIN MESILATE [Suspect]
     Indication: BREAST CANCER
     Route: 065
  8. VINORELBINE [Suspect]
     Indication: BREAST CANCER
     Route: 065

REACTIONS (1)
  - Disease progression [Recovered/Resolved]
